FAERS Safety Report 11294540 (Version 1)
Quarter: 2015Q3

REPORT INFORMATION
  Report Type: Spontaneous
  Country: US (occurrence: None)
  Receive Date: 20150721
  Receipt Date: 20150721
  Transmission Date: 20151125
  Serious: Yes (Hospitalization)
  Sender: FDA-Public Use
  Company Number: NSR_02157_2015

PATIENT
  Age: 57 Year
  Sex: Female
  Weight: 110 kg

DRUGS (8)
  1. ASPIRIN. [Concomitant]
     Active Substance: ASPIRIN
  2. GABAPENTIN. [Concomitant]
     Active Substance: GABAPENTIN
  3. INSULIN GLARGINE [Concomitant]
     Active Substance: INSULIN GLARGINE
  4. METHIMAZOLE. [Concomitant]
     Active Substance: METHIMAZOLE
  5. INSULIN ASPART [Concomitant]
     Active Substance: INSULIN ASPART
  6. BACLOFEN. [Suspect]
     Active Substance: BACLOFEN
     Indication: MUSCLE SPASMS
     Dosage: 10 MG, BID TOTAL DOSE: 140 MG IN 1 WEEK
  7. SIMVASTATIN. [Concomitant]
     Active Substance: SIMVASTATIN
  8. METOPROLOL [Concomitant]
     Active Substance: METOPROLOL

REACTIONS (5)
  - Disturbance in attention [None]
  - Toxicity to various agents [None]
  - Hypotonia [None]
  - Altered state of consciousness [None]
  - Muscle spasms [None]
